FAERS Safety Report 8159347-8 (Version None)
Quarter: 2012Q1

REPORT INFORMATION
  Report Type: 
  Country: None (occurrence: None)
  Receive Date: 20120223
  Receipt Date: 20120220
  Transmission Date: 20120608
  Serious: Yes (Other)
  Sender: FDA-Public Use
  Company Number: JP-PFIZER INC-2012044671

PATIENT
  Age: 58 Year
  Sex: Male

DRUGS (3)
  1. ALCOHOL [Concomitant]
  2. EPLERENONE [Suspect]
     Indication: HYPERTENSION
     Dosage: 50 MG, DAILY
     Route: 048
     Dates: start: 20111018, end: 20120218
  3. MICARDIS [Suspect]
     Indication: HYPERTENSION
     Dosage: 40 MG, DAILY
     Route: 048
     Dates: start: 20110512

REACTIONS (3)
  - GASTROINTESTINAL DISORDER [None]
  - SYNCOPE [None]
  - BLOOD PRESSURE DECREASED [None]
